FAERS Safety Report 14751657 (Version 1)
Quarter: 2018Q2

REPORT INFORMATION
  Report Type: Spontaneous
  Country: US (occurrence: US)
  Receive Date: 20180412
  Receipt Date: 20180412
  Transmission Date: 20180711
  Serious: No
  Sender: FDA-Public Use
  Company Number: US-009507513-1803USA009388

PATIENT
  Age: 36 Year
  Sex: Female
  Weight: 57.14 kg

DRUGS (2)
  1. NEXPLANON [Suspect]
     Active Substance: ETONOGESTREL
     Dosage: 1 ROD EVERY YEARS
     Route: 059
     Dates: start: 20150429, end: 20180312
  2. NEXPLANON [Suspect]
     Active Substance: ETONOGESTREL
     Dosage: 1 ROD EVERY 3 YEARS
     Route: 059
     Dates: start: 20180312

REACTIONS (3)
  - Device difficult to use [Recovered/Resolved]
  - Implant site fibrosis [Recovered/Resolved]
  - Implant site scar [Recovered/Resolved]

NARRATIVE: CASE EVENT DATE: 20180308
